FAERS Safety Report 7570475-8 (Version None)
Quarter: 2011Q2

REPORT INFORMATION
  Report Type: 
  Country: None (occurrence: None)
  Receive Date: 20110624
  Receipt Date: 20110308
  Transmission Date: 20111010
  Serious: No
  Sender: FDA-Public Use
  Company Number: US-ALLERGAN-1103271US

PATIENT
  Age: 43 Year
  Sex: Female

DRUGS (1)
  1. LATISSE [Suspect]
     Indication: GROWTH OF EYELASHES
     Dosage: 1 GTT, QHS
     Dates: start: 20110201

REACTIONS (3)
  - EYELIDS PRURITUS [None]
  - ERYTHEMA OF EYELID [None]
  - HORDEOLUM [None]
